FAERS Safety Report 8304775-0 (Version None)
Quarter: 2012Q2

REPORT INFORMATION
  Report Type: 
  Country: None (occurrence: None)
  Receive Date: 20120423
  Receipt Date: 20120410
  Transmission Date: 20120825
  Serious: Yes (Other)
  Sender: FDA-Public Use
  Company Number: US-ROCHE-1058754

PATIENT
  Age: 44 Year
  Sex: Female
  Weight: 61 kg

DRUGS (3)
  1. ACETAMINOPHEN AND TRAMADOL HCL [Concomitant]
  2. PRIMPERAN INJ [Concomitant]
  3. VISMODEGIB [Suspect]
     Indication: CHONDROSARCOMA
     Route: 048
     Dates: start: 20120220, end: 20120326

REACTIONS (5)
  - ALANINE AMINOTRANSFERASE INCREASED [None]
  - ASPARTATE AMINOTRANSFERASE INCREASED [None]
  - HEPATOTOXICITY [None]
  - HEPATOCELLULAR INJURY [None]
  - GAMMA-GLUTAMYLTRANSFERASE INCREASED [None]
